FAERS Safety Report 15903532 (Version 1)
Quarter: 2019Q1

REPORT INFORMATION
  Report Type: Report from Study
  Country: CA (occurrence: CA)
  Receive Date: 20190203
  Receipt Date: 20190203
  Transmission Date: 20190417
  Serious: Yes (Other)
  Sender: FDA-Public Use
  Company Number: PHHY2018CA182957

PATIENT
  Sex: Female

DRUGS (2)
  1. GABAPENTIN. [Concomitant]
     Active Substance: GABAPENTIN
     Indication: MIGRAINE
     Dosage: FOR MORE THAN 2 YEARS
     Route: 065
  2. VALPROIC ACID. [Suspect]
     Active Substance: VALPROIC ACID
     Indication: MIGRAINE
     Dosage: FOR MORE THAN 2 YEARS
     Route: 065

REACTIONS (10)
  - Brain injury [Unknown]
  - Fibromyalgia [Unknown]
  - Feeling abnormal [Unknown]
  - Raynaud^s phenomenon [Unknown]
  - Seizure [Unknown]
  - Drug ineffective for unapproved indication [Unknown]
  - Brain neoplasm [Unknown]
  - Systemic lupus erythematosus [Unknown]
  - Poor peripheral circulation [Unknown]
  - Eye disorder [Unknown]
